FAERS Safety Report 6244077-X (Version None)
Quarter: 2009Q2

REPORT INFORMATION
  Report Type: 
  Country: None (occurrence: None)
  Receive Date: 20090625
  Receipt Date: 20070919
  Transmission Date: 20091009
  Serious: Yes (Other)
  Sender: FDA-Public Use
  Company Number: US-ASTRAZENECA-2006UW23262

PATIENT
  Age: 42 Year
  Sex: Female
  Weight: 72.6 kg

DRUGS (19)
  1. SEROQUEL [Suspect]
     Indication: DEPRESSION
     Route: 048
     Dates: start: 20010101
  2. SEROQUEL [Suspect]
     Indication: BIPOLAR DISORDER
     Route: 048
     Dates: start: 20010101
  3. SEROQUEL [Suspect]
     Indication: SCHIZOPHRENIA
     Route: 048
     Dates: start: 20010101
  4. SEROQUEL [Suspect]
     Route: 048
     Dates: start: 20020410
  5. SEROQUEL [Suspect]
     Route: 048
     Dates: start: 20020410
  6. SEROQUEL [Suspect]
     Route: 048
     Dates: start: 20020410
  7. LASIX [Concomitant]
     Dates: start: 20050701
  8. GLIPIZIDE [Concomitant]
     Dates: start: 20070622
  9. BENAZEPRIL HYDROCHLORIDE [Concomitant]
     Dates: start: 20070622
  10. METOPROLOL SUCCINATE [Concomitant]
     Dates: start: 20070622
  11. NEXIUM [Concomitant]
     Dates: start: 20050701
  12. ATENOLOL [Concomitant]
     Dates: start: 20050701
  13. GLUCOPHAGE [Concomitant]
     Dates: start: 20050701
  14. NORVASC [Concomitant]
     Dates: start: 20050701
  15. XANAX [Concomitant]
     Dates: start: 20050701
  16. CELEXA [Concomitant]
     Dates: start: 20070622
  17. ZOLOFT [Concomitant]
     Route: 048
     Dates: start: 20020410
  18. WELLBUTRIN SR [Concomitant]
     Route: 048
     Dates: start: 20020410
  19. KLONOPIN [Concomitant]
     Indication: ANXIETY
     Route: 048
     Dates: start: 20020410

REACTIONS (4)
  - CORONARY ARTERY DISEASE [None]
  - DIABETES MELLITUS [None]
  - DIABETIC NEUROPATHY [None]
  - TYPE 2 DIABETES MELLITUS [None]
